FAERS Safety Report 8998136 (Version 5)
Quarter: 2013Q1

REPORT INFORMATION
  Report Type: Report from Study
  Country: DE (occurrence: DE)
  Receive Date: 20130104
  Receipt Date: 20130306
  Transmission Date: 20140127
  Serious: Yes (Death, Life-Threatening, Hospitalization)
  Sender: FDA-Public Use
  Company Number: DE-BAYER-2012-131084

PATIENT
  Age: 54 Year
  Sex: Male
  Weight: 94 kg

DRUGS (16)
  1. REGORAFENIB [Suspect]
     Indication: COLORECTAL CANCER METASTATIC
     Dosage: 40 MG X 4=160 MG
     Route: 048
     Dates: start: 20121214, end: 20130104
  2. STUDY MED NOT GIVEN (15967) [Suspect]
     Indication: COLORECTAL CANCER METASTATIC
     Dosage: STUDY MED NOT GIVEN
  3. ASS [Concomitant]
     Indication: PROPHYLAXIS
     Dosage: TOTAL DAILY DOSE 100 MG
     Route: 048
     Dates: start: 201210
  4. NOVALGIN [Concomitant]
     Indication: PAIN PROPHYLAXIS
     Dosage: TOTAL DAILY DOSE 30 DROPS
     Route: 048
     Dates: start: 20121130
  5. PANTOZOL [Concomitant]
     Indication: PROPHYLAXIS
     Dosage: TOTAL DAILY DOSE 10 MG, PRN
     Route: 048
  6. PANTOZOL [Concomitant]
     Indication: PROPHYLAXIS
  7. LEVODROPROPIZINE [Concomitant]
     Indication: PROPHYLAXIS
     Dosage: UNK
     Route: 048
     Dates: start: 20121130
  8. TRAMADOL [Concomitant]
     Indication: PAIN PROPHYLAXIS
     Dosage: DAILY DOSE 200 MG
     Route: 048
     Dates: start: 20121218
  9. NOVAMINSULFON [Concomitant]
     Indication: PAIN
     Dosage: DAILY DOSE 1500 MG
     Route: 048
  10. OSMOTICALLY ACTING LAXATIVES [Concomitant]
     Indication: CONSTIPATION
     Dosage: UNK
     Route: 048
     Dates: start: 20121218
  11. TAMSULOSIN [Concomitant]
     Indication: URINARY RETENTION
     Dosage: DAILY DOSE .4 MG
     Route: 048
     Dates: start: 20121215
  12. ZINK [Concomitant]
     Indication: PROPHYLAXIS
     Dosage: UNK UNK, PRN
     Route: 048
  13. LINOLA [LINOLEIC ACID] [Concomitant]
     Indication: PROPHYLAXIS
     Dosage: UNK UNK, PRN
     Route: 062
     Dates: start: 20121214
  14. LACTULOSE [Concomitant]
     Indication: CONSTIPATION
     Dosage: UNK UNK, PRN
     Route: 048
     Dates: start: 20121221
  15. MACROGOL [Concomitant]
     Indication: CONSTIPATION
     Dosage: UNK
     Route: 048
     Dates: start: 20121218
  16. ANTIBIOTICS [Concomitant]
     Indication: URINARY TRACT INFECTION
     Dosage: UNK
     Route: 048
     Dates: start: 20130105

REACTIONS (5)
  - Sepsis [Fatal]
  - Ileus [Recovered/Resolved]
  - Constipation [Recovered/Resolved]
  - Subileus [Recovered/Resolved]
  - Peritonitis [Not Recovered/Not Resolved]
